FAERS Safety Report 4881946-7 (Version None)
Quarter: 2006Q1

REPORT INFORMATION
  Report Type: 
  Country: None (occurrence: None)
  Receive Date: 20060117
  Receipt Date: 20050810
  Transmission Date: 20060701
  Serious: Yes (Other)
  Sender: FDA-Public Use
  Company Number: US-GLAXOSMITHKLINE-A0570086A

PATIENT
  Age: 36 Year
  Sex: Female
  Weight: 65.9 kg

DRUGS (6)
  1. WELLBUTRIN XL [Suspect]
     Indication: BIPOLAR DISORDER
     Route: 048
     Dates: start: 20050428, end: 20050630
  2. TERBUTALINE [Concomitant]
  3. MAGNESIUM [Concomitant]
  4. ZOLOFT [Concomitant]
     Indication: BIPOLAR DISORDER
     Dates: start: 20050728, end: 20051001
  5. OMEGA 3 FISH OIL [Concomitant]
  6. FOLIC ACID [Concomitant]

REACTIONS (4)
  - ACNE [None]
  - DRUG EXPOSURE DURING PREGNANCY [None]
  - HAEMANGIOMA [None]
  - UTERINE CONTRACTIONS DURING PREGNANCY [None]
